FAERS Safety Report 9508089 (Version 1)
Quarter: 2013Q3

REPORT INFORMATION
  Report Type: Spontaneous
  Country: US (occurrence: US)
  Receive Date: 20130909
  Receipt Date: 20130909
  Transmission Date: 20140515
  Serious: Yes (Hospitalization, Other)
  Sender: FDA-Public Use
  Company Number: US-ABBOTT-13P-163-1142706-00

PATIENT
  Sex: Female

DRUGS (2)
  1. HUMIRA [Suspect]
     Indication: CROHN^S DISEASE
  2. CIMZIA [Concomitant]
     Indication: CROHN^S DISEASE

REACTIONS (6)
  - Abortion spontaneous [Unknown]
  - Small intestinal resection [Unknown]
  - Crohn^s disease [Unknown]
  - Crohn^s disease [Unknown]
  - Crohn^s disease [Unknown]
  - Sinusitis [Unknown]
